FAERS Safety Report 10085706 (Version 1)
Quarter: 2014Q2

REPORT INFORMATION
  Report Type: Spontaneous
  Country: US (occurrence: None)
  Receive Date: 20140416
  Receipt Date: 20140416
  Transmission Date: 20141212
  Serious: Yes (Other)
  Sender: FDA-Public Use
  Company Number: AUR-APL-2014-04469

PATIENT
  Age: 55 Year
  Sex: Female

DRUGS (2)
  1. HYDROCHLOROTHIAZIDE [Suspect]
     Indication: HYPERTENSION
  2. ENBREL (ETANERCEPT) [Suspect]
     Indication: RHEUMATOID ARTHRITIS

REACTIONS (5)
  - Hypertension [None]
  - Rash pruritic [None]
  - Pain [None]
  - Vasculitis [None]
  - Wound complication [None]
